FAERS Safety Report 23296989 (Version 1)
Quarter: 2023Q4

REPORT INFORMATION
  Report Type: Spontaneous
  Country: US (occurrence: None)
  Receive Date: 20231214
  Receipt Date: 20231214
  Transmission Date: 20240110
  Serious: No
  Sender: FDA-Public Use
  Company Number: None

PATIENT
  Sex: Male

DRUGS (1)
  1. GENOTROPIN [Suspect]
     Active Substance: SOMATROPIN
     Indication: Hypopituitarism
     Dosage: DOSE/AMOUNT, FREQUENCY; INJECT 1.6MG EVERY OTHER DAY ALTERNATING WITH 1.8 MG UNDER THE SKIN NIGHTLY
     Route: 058
     Dates: start: 202303

REACTIONS (1)
  - Drug ineffective [None]
